FAERS Safety Report 21921375 (Version 2)
Quarter: 2023Q1

REPORT INFORMATION
  Report Type: Report from Study
  Country: IT (occurrence: None)
  Receive Date: 20230127
  Receipt Date: 20230203
  Transmission Date: 20230417
  Serious: Yes (Life-Threatening)
  Sender: FDA-Public Use
  Company Number: IT-Merck Healthcare KGaA-9379201

PATIENT
  Age: 41 Year
  Sex: Female

DRUGS (5)
  1. CLADRIBINE [Suspect]
     Active Substance: CLADRIBINE
     Indication: Relapsing multiple sclerosis
     Dosage: YEAR ONE MONTH ONE THERAPY
     Dates: start: 20221111, end: 20221115
  2. CLADRIBINE [Suspect]
     Active Substance: CLADRIBINE
     Dosage: YEAR ONE MONTH TWO THERAPY
     Dates: start: 20221211, end: 20221215
  3. ACETYLCYSTEINE [Concomitant]
     Active Substance: ACETYLCYSTEINE
     Indication: Transaminases increased
     Dosage: 5 VIALS AT DAY
     Route: 042
     Dates: start: 20221221, end: 20221224
  4. ACETYLCYSTEINE [Concomitant]
     Active Substance: ACETYLCYSTEINE
     Dosage: 5 VIALS AT DAY
     Route: 042
     Dates: start: 20221227, end: 20221231
  5. ACETYLCYSTEINE [Concomitant]
     Active Substance: ACETYLCYSTEINE
     Dosage: 5 VIALS AT DAY
     Route: 042
     Dates: start: 20230102, end: 20230104

REACTIONS (1)
  - Drug-induced liver injury [Not Recovered/Not Resolved]

NARRATIVE: CASE EVENT DATE: 20221217
